FAERS Safety Report 12690211 (Version 2)
Quarter: 2016Q3

REPORT INFORMATION
  Report Type: Report from Study
  Country: US (occurrence: US)
  Receive Date: 20160826
  Receipt Date: 20160926
  Transmission Date: 20161109
  Serious: Yes (Hospitalization)
  Sender: FDA-Public Use
  Company Number: US-ACTELION-A-NJ2016-141231

PATIENT
  Age: 68 Year
  Sex: Female

DRUGS (3)
  1. OPSUMIT [Suspect]
     Active Substance: MACITENTAN
     Indication: PULMONARY ARTERIAL HYPERTENSION
     Dosage: 10 MG, QD
     Route: 048
     Dates: start: 20160303
  2. SILDENAFIL. [Concomitant]
     Active Substance: SILDENAFIL
  3. WARFARIN [Concomitant]
     Active Substance: WARFARIN

REACTIONS (2)
  - Oedema peripheral [Unknown]
  - Cellulitis [Unknown]

NARRATIVE: CASE EVENT DATE: 20160812
